FAERS Safety Report 5345256-6 (Version None)
Quarter: 2007Q2

REPORT INFORMATION
  Report Type: 
  Country: None (occurrence: None)
  Receive Date: 20070601
  Receipt Date: 20070601
  Transmission Date: 20071010
  Serious: No
  Sender: FDA-Public Use
  Company Number: None

PATIENT
  Age: 24 Year
  Sex: Female
  Weight: 88.905 kg

DRUGS (3)
  1. OXYCODONE HCL [Suspect]
     Indication: INTERVERTEBRAL DISC DEGENERATION
     Dosage: 20MG BID PO
     Route: 048
     Dates: start: 20070101
  2. OXYCODONE HCL [Suspect]
     Indication: PAIN
     Dosage: 20MG BID PO
     Route: 048
     Dates: start: 20070101
  3. SOMA [Concomitant]

REACTIONS (2)
  - CONSTIPATION [None]
  - PHARMACEUTICAL PRODUCT COMPLAINT [None]
